FAERS Safety Report 14289795 (Version 1)
Quarter: 2017Q4

REPORT INFORMATION
  Report Type: Spontaneous
  Country: US (occurrence: US)
  Receive Date: 20171214
  Receipt Date: 20171214
  Transmission Date: 20180321
  Serious: Yes (Disabling)
  Sender: FDA-Public Use
  Company Number: US-SA-2017SA250548

PATIENT
  Age: 72 Year
  Sex: Female

DRUGS (1)
  1. PLAVIX [Suspect]
     Active Substance: CLOPIDOGREL BISULFATE
     Indication: CEREBROVASCULAR ACCIDENT
     Dosage: AT MORNING
     Route: 048

REACTIONS (6)
  - Pain [Unknown]
  - Parkinson^s disease [Unknown]
  - Gait inability [Unknown]
  - Condition aggravated [Unknown]
  - Speech disorder [Unknown]
  - Pain in extremity [Unknown]
